FAERS Safety Report 15539131 (Version 2)
Quarter: 2018Q4

REPORT INFORMATION
  Report Type: Spontaneous
  Country: CH (occurrence: CH)
  Receive Date: 20181022
  Receipt Date: 20181106
  Transmission Date: 20190205
  Serious: Yes (Other)
  Sender: FDA-Public Use
  Company Number: CH-LPDUSPRD-20181921

PATIENT
  Sex: Male

DRUGS (1)
  1. FERINJECT [Suspect]
     Active Substance: FERRIC CARBOXYMALTOSE
     Dosage: 3 X 500MG  (500MG)
     Route: 041
     Dates: start: 2014

REACTIONS (13)
  - Migraine [Not Recovered/Not Resolved]
  - Ill-defined disorder [Unknown]
  - Lymphatic disorder [Unknown]
  - Bone pain [Not Recovered/Not Resolved]
  - Chronic lymphocytic leukaemia [Unknown]
  - Fatigue [Not Recovered/Not Resolved]
  - Serum ferritin increased [Unknown]
  - Gastrointestinal inflammation [Unknown]
  - Mental disorder [Unknown]
  - Gastrointestinal disorder [Not Recovered/Not Resolved]
  - Hepatic function abnormal [Unknown]
  - Peritonsillar abscess [Unknown]
  - Malaise [Unknown]

NARRATIVE: CASE EVENT DATE: 2014
